FAERS Safety Report 11943376 (Version 1)
Quarter: 2016Q1

REPORT INFORMATION
  Report Type: Spontaneous
  Country: US (occurrence: US)
  Receive Date: 20160125
  Receipt Date: 20160125
  Transmission Date: 20160526
  Serious: No
  Sender: FDA-Public Use
  Company Number: US-UNITED THERAPEUTICS-UNT-2015-011127

PATIENT
  Age: 47 Year
  Sex: Female
  Weight: 68.27 kg

DRUGS (3)
  1. REMODULIN [Suspect]
     Active Substance: TREPROSTINIL
     Indication: PULMONARY HYPERTENSION
     Dosage: 0.092 ?G/KG/MIN, CONTINUING
     Route: 041
     Dates: start: 20140806
  2. REVATIO [Concomitant]
     Active Substance: SILDENAFIL CITRATE
     Indication: PRODUCT USED FOR UNKNOWN INDICATION
  3. LETAIRIS [Concomitant]
     Active Substance: AMBRISENTAN
     Indication: PRODUCT USED FOR UNKNOWN INDICATION

REACTIONS (16)
  - Skin exfoliation [Unknown]
  - Injection site pruritus [Not Recovered/Not Resolved]
  - Herpes zoster [Unknown]
  - Cellulitis [Unknown]
  - Nausea [Recovering/Resolving]
  - Flushing [Unknown]
  - Injection site pain [Unknown]
  - Pruritus generalised [Unknown]
  - Malaise [Unknown]
  - Injection site discharge [Not Recovered/Not Resolved]
  - Dermatitis contact [Not Recovered/Not Resolved]
  - Accidental overdose [Unknown]
  - Drug dose omission [Recovering/Resolving]
  - Device dislocation [Unknown]
  - Complication associated with device [Unknown]
  - Device occlusion [Recovering/Resolving]

NARRATIVE: CASE EVENT DATE: 201509
